FAERS Safety Report 8222245 (Version 4)
Quarter: 2014Q4

REPORT INFORMATION
  Report Type: Spontaneous
  Country: JP (occurrence: JP)
  Receive Date: 20111102
  Receipt Date: 20141030
  Transmission Date: 20150529
  Serious: Yes (Hospitalization, Other)
  Sender: FDA-Public Use
  Company Number: CHNY2011JP00467

PATIENT
  Age: 57 Year
  Sex: Female
  Weight: 97 kg

DRUGS (11)
  1. NICOTINE TRANSDERMAL SYSTEM [Suspect]
     Active Substance: NICOTINE
     Indication: NICOTINE DEPENDENCE
     Dosage: 52.5 MG, QD
     Route: 062
     Dates: start: 20091026, end: 20091105
  2. APIDRA [Concomitant]
     Active Substance: INSULIN GLULISINE
     Indication: DIABETES MELLITUS
     Dosage: 39 IU, UNK
     Route: 058
     Dates: start: 20090702
  3. ONON [Concomitant]
     Active Substance: PRANLUKAST
     Indication: ASTHMA
     Dosage: 225 MG, UNK
     Route: 048
     Dates: start: 20080312
  4. EPL//POLYENE PHOSPHATIDYLCHOLINE [Concomitant]
     Indication: ARTERIOSCLEROSIS
     Dosage: 1500 MG, UNK
     Route: 048
     Dates: start: 20070509
  5. LORELCO [Concomitant]
     Active Substance: PROBUCOL
     Indication: HYPERLIPIDAEMIA
     Dosage: 250 MG, UNK
     Route: 048
     Dates: start: 20080804
  6. EBASTEL [Concomitant]
     Active Substance: EBASTINE
     Indication: RHINITIS ALLERGIC
     Dosage: 10 MG, UNK
     Route: 048
     Dates: start: 20070509
  7. GLIMICRON [Concomitant]
     Active Substance: GLICLAZIDE
     Indication: DIABETES MELLITUS
     Dosage: 40 MG, UNK
     Route: 048
     Dates: start: 20070509
  8. PREMINENT [Concomitant]
     Active Substance: HYDROCHLOROTHIAZIDE\LOSARTAN POTASSIUM
     Indication: HYPERTENSION
     Dosage: 1 DF, UNK
     Route: 048
     Dates: start: 20080522
  9. LANTUS [Concomitant]
     Active Substance: INSULIN GLARGINE
     Indication: DIABETES MELLITUS
     Dosage: 20 IU, UNK
     Route: 058
     Dates: start: 20070509
  10. BAYASPIRIN [Concomitant]
     Active Substance: ASPIRIN
     Indication: ANGINA PECTORIS
     Dosage: 100 MG, UNK
     Route: 048
     Dates: start: 20080410
  11. KINEDAK [Concomitant]
     Active Substance: EPALRESTAT
     Indication: NERVOUS SYSTEM DISORDER
     Dosage: 150 MG, UNK
     Route: 048
     Dates: start: 20070509

REACTIONS (5)
  - VIIth nerve paralysis [Recovered/Resolved]
  - Face oedema [Recovered/Resolved]
  - Glycosylated haemoglobin increased [Unknown]
  - Speech disorder [Unknown]
  - Muscle twitching [Unknown]

NARRATIVE: CASE EVENT DATE: 20091101
